FAERS Safety Report 5088680-1 (Version None)
Quarter: 2006Q3

REPORT INFORMATION
  Report Type: 
  Country: None (occurrence: None)
  Receive Date: 20060825
  Receipt Date: 20060719
  Transmission Date: 20061208
  Serious: Yes (Death, Hospitalization, Other)
  Sender: FDA-Public Use
  Company Number: PHBS2006JP10832

PATIENT
  Age: 64 Year
  Sex: Male

DRUGS (7)
  1. MEDROL [Suspect]
     Indication: RENAL TRANSPLANT
     Dosage: 4 MG/D
     Route: 048
     Dates: start: 19920715, end: 20060130
  2. CELLCEPT [Suspect]
     Indication: RENAL TRANSPLANT
     Dosage: 10000 MG/D
     Route: 048
     Dates: start: 20020101, end: 20060111
  3. NEORAL [Suspect]
     Indication: RENAL TRANSPLANT
     Dosage: 75 MG/D
     Route: 048
     Dates: start: 20000101, end: 20060111
  4. SOLU-MEDROL [Suspect]
     Indication: RENAL TRANSPLANT
     Dosage: 1 G
     Route: 042
     Dates: start: 20060117, end: 20060119
  5. SOLU-MEDROL [Suspect]
     Route: 042
     Dates: start: 19920701
  6. MIZORIBINE [Concomitant]
     Indication: RENAL TRANSPLANT
     Dosage: 100 MG/D
     Route: 048
     Dates: start: 19920716, end: 20020101
  7. LYMPHOGLOBULINE [Concomitant]
     Indication: RENAL TRANSPLANT
     Route: 065
     Dates: start: 19920701

REACTIONS (12)
  - BLOOD CREATININE INCREASED [None]
  - CHRONIC ALLOGRAFT NEPHROPATHY [None]
  - CREPITATIONS [None]
  - DYSPNOEA [None]
  - HAEMODIALYSIS [None]
  - INTERSTITIAL LUNG DISEASE [None]
  - OEDEMA PERIPHERAL [None]
  - PNEUMONIA LEGIONELLA [None]
  - PYREXIA [None]
  - RESPIRATORY FAILURE [None]
  - SEPSIS [None]
  - SEPTIC SHOCK [None]
